FAERS Safety Report 24028554 (Version 1)
Quarter: 2024Q2

REPORT INFORMATION
  Report Type: Spontaneous
  Country: AT (occurrence: None)
  Receive Date: 20240628
  Receipt Date: 20240628
  Transmission Date: 20240715
  Serious: Yes (Other)
  Sender: FDA-Public Use
  Company Number: 2024A142912

PATIENT
  Age: 70 Year
  Sex: Male

DRUGS (1)
  1. PULMICORT TURBUHALER [Suspect]
     Active Substance: BUDESONIDE
     Dosage: ONE-TIME
     Route: 055
     Dates: start: 20240417

REACTIONS (1)
  - Retinal detachment [Not Recovered/Not Resolved]

NARRATIVE: CASE EVENT DATE: 20240417
